FAERS Safety Report 4475072-9 (Version None)
Quarter: 2004Q4

REPORT INFORMATION
  Report Type: 
  Country: None (occurrence: None)
  Receive Date: 20041015
  Receipt Date: 20041006
  Transmission Date: 20050328
  Serious: Yes (Death)
  Sender: FDA-Public Use
  Company Number: US-JNJFOC-20041002238

PATIENT
  Sex: Male
  Weight: 102.51 kg

DRUGS (11)
  1. REMICADE [Suspect]
     Indication: RHEUMATOID ARTHRITIS
     Dosage: TWO INFUSIONS
     Route: 042
  2. CELEBREX [Concomitant]
  3. PREDNISONE [Concomitant]
  4. ZOCOR [Concomitant]
  5. ASPIRIN [Concomitant]
  6. GUAFENISIN [Concomitant]
  7. PROTONIX [Concomitant]
  8. SULFASALAZINE [Concomitant]
  9. COREG [Concomitant]
  10. HUMILIN N [Concomitant]
  11. HUMULIN R [Concomitant]

REACTIONS (1)
  - DEATH [None]
